FAERS Safety Report 21296180 (Version 1)
Quarter: 2022Q3

REPORT INFORMATION
  Report Type: Spontaneous
  Country: US (occurrence: US)
  Receive Date: 20220906
  Receipt Date: 20220906
  Transmission Date: 20221026
  Serious: Yes (Other)
  Sender: FDA-Public Use
  Company Number: US-SA-SAC20220901000467

PATIENT
  Sex: Male

DRUGS (2)
  1. RANITIDINE HYDROCHLORIDE [Suspect]
     Active Substance: RANITIDINE HYDROCHLORIDE
     Dosage: UNK,OVER THE COUNTER RANITIDINE FROM APPROXIMATELY 1997 TO 2013,PRESCRIPTION RANITIDINE FROM APPROXI
     Route: 048
     Dates: start: 1997, end: 2013
  2. RANITIDINE HYDROCHLORIDE [Suspect]
     Active Substance: RANITIDINE HYDROCHLORIDE
     Dosage: UNK
     Route: 048

REACTIONS (2)
  - Prostate cancer [Unknown]
  - Appendix cancer [Unknown]
